FAERS Safety Report 24942420 (Version 6)
Quarter: 2025Q1

REPORT INFORMATION
  Report Type: Spontaneous
  Country: GB (occurrence: GB)
  Receive Date: 20250207
  Receipt Date: 20250327
  Transmission Date: 20250408
  Serious: Yes (Other)
  Sender: BAYER HEALTHCARE PHARMACEUTICALS INC.
  Company Number: GB-BAYER-2025A015747

PATIENT
  Age: 48 Year
  Sex: Female

DRUGS (4)
  1. MIRENA [Suspect]
     Active Substance: LEVONORGESTREL
     Indication: Menopause
     Dosage: 20?G/DAY
     Route: 015
     Dates: start: 20190202
  2. MIRENA [Suspect]
     Active Substance: LEVONORGESTREL
     Indication: Contraception
  3. PROGESTERONE [Suspect]
     Active Substance: PROGESTERONE
     Indication: Menopause
     Route: 048
  4. PROGESTERONE [Suspect]
     Active Substance: PROGESTERONE
     Indication: Contraception

REACTIONS (13)
  - Device breakage [None]
  - Stress [None]
  - Procedural pain [None]
  - Device expulsion [Not Recovered/Not Resolved]
  - Drug intolerance [None]
  - Anxiety [None]
  - Discomfort [None]
  - Device defective [None]
  - Abdominal pain upper [Not Recovered/Not Resolved]
  - Electric shock sensation [None]
  - Depression [None]
  - Post procedural discomfort [None]
  - Complication of device removal [None]

NARRATIVE: CASE EVENT DATE: 20250116
